FAERS Safety Report 5679644-5 (Version None)
Quarter: 2008Q1

REPORT INFORMATION
  Report Type: 
  Country: None (occurrence: None)
  Receive Date: 20080325
  Receipt Date: 20080318
  Transmission Date: 20080703
  Serious: Yes (Other)
  Sender: FDA-Public Use
  Company Number: DE-ABBOTT-08P-062-0439710-00

PATIENT
  Sex: Female

DRUGS (35)
  1. VALPROATE SODIUM [Suspect]
     Indication: EPILEPSY
     Route: 048
     Dates: start: 20040912
  2. VALPROATE SODIUM [Suspect]
     Route: 048
     Dates: start: 20040909
  3. PANTOZOL IV [Suspect]
     Indication: PROPHYLAXIS AGAINST GASTROINTESTINAL ULCER
     Route: 042
     Dates: start: 20040911, end: 20040926
  4. PANTOPRAZOLE SODIUM SEQUIHYDRATE [Suspect]
     Indication: PROPHYLAXIS AGAINST GASTROINTESTINAL ULCER
     Route: 048
     Dates: start: 20040927
  5. LEVOTHYROXINE SODIUM [Suspect]
     Indication: HYPOTHYROIDISM
     Route: 048
     Dates: start: 20040918
  6. LORAZEPAM [Suspect]
     Indication: SEDATION
     Route: 042
     Dates: start: 20040923
  7. MESNA [Suspect]
     Indication: WEGENER'S GRANULOMATOSIS
     Route: 048
     Dates: start: 20040910, end: 20041011
  8. FENTANYL [Concomitant]
     Indication: RESPIRATORY FAILURE
     Route: 042
     Dates: start: 20040917, end: 20040923
  9. CEFTRIAXONE [Concomitant]
     Indication: SEPSIS
     Route: 042
     Dates: start: 20040911, end: 20040926
  10. FUROSEMIDE [Concomitant]
     Indication: OEDEMA
     Route: 042
     Dates: start: 20040921, end: 20040922
  11. KALINOR [Concomitant]
     Indication: HYPOKALAEMIA
     Route: 048
     Dates: start: 20040928, end: 20041013
  12. AMPHOTERICIN B [Concomitant]
     Indication: CANDIDIASIS
     Route: 048
     Dates: start: 20040911, end: 20040917
  13. FUROSEMIDE [Concomitant]
     Indication: OEDEMA
     Route: 042
     Dates: start: 20040917, end: 20040917
  14. PROPOFOL [Concomitant]
     Indication: SEDATION
     Route: 042
     Dates: start: 20040913, end: 20040918
  15. METOCLOPRAMIDE HYDROCHLORIDE [Concomitant]
     Indication: NAUSEA
     Route: 042
     Dates: start: 20040914, end: 20040919
  16. METOCLOPRAMIDE HYDROCHLORIDE [Concomitant]
     Indication: VOMITING
  17. NITRAZEPAM [Concomitant]
     Indication: ENDOTRACHEAL INTUBATION
     Route: 042
     Dates: start: 20040917, end: 20040923
  18. NOREPINEPHRINE HYDROCHLORIDE [Concomitant]
     Indication: ENDOTRACHEAL INTUBATION
     Route: 042
     Dates: start: 20040914, end: 20040925
  19. TRACUTIL [Concomitant]
     Indication: SUPPLEMENTATION THERAPY
     Route: 042
     Dates: start: 20040914, end: 20040926
  20. FLUCLOXACILLIN [Concomitant]
     Indication: SEPSIS
     Route: 042
     Dates: start: 20040915, end: 20040927
  21. GLUCOSE [Concomitant]
     Indication: DRUG USE FOR UNKNOWN INDICATION
     Route: 042
     Dates: start: 20040902, end: 20040930
  22. CYCLOPHOSPHAMIDE [Concomitant]
     Indication: WEGENER'S GRANULOMATOSIS
     Route: 048
     Dates: start: 20040910, end: 20040926
  23. CYCLOPHOSPHAMIDE [Concomitant]
     Route: 048
     Dates: start: 20040928, end: 20041002
  24. CERNEVIT-12 [Concomitant]
     Indication: HYPOVITAMINOSIS
     Route: 042
     Dates: start: 20040914, end: 20041002
  25. PREDNISOLONE [Concomitant]
     Indication: WEGENER'S GRANULOMATOSIS
     Route: 042
     Dates: start: 20040908, end: 20041003
  26. ENOXAPARIN SODIUM [Concomitant]
     Indication: THROMBOSIS PROPHYLAXIS
     Route: 058
     Dates: start: 20040911
  27. MEDROXYPROGESTERONE ACETATE [Concomitant]
     Indication: CONTRACEPTION
     Route: 030
     Dates: start: 20070601
  28. KENEPHRO [Concomitant]
     Indication: SUPPLEMENTATION THERAPY
     Route: 042
     Dates: start: 20040911
  29. INSULIN [Concomitant]
     Indication: HYPERGLYCAEMIA
     Route: 058
     Dates: start: 20040918, end: 20040920
  30. INSULIN [Concomitant]
     Route: 058
     Dates: start: 20040923, end: 20040928
  31. PHYTOMENADIONE [Concomitant]
     Indication: COAGULOPATHY
     Route: 042
     Dates: start: 20040919, end: 20040928
  32. MORPHINE [Concomitant]
     Indication: PAIN
     Route: 042
     Dates: start: 20040923, end: 20040929
  33. METRONIDAZOLE HCL [Concomitant]
     Indication: SEPSIS
     Route: 042
     Dates: start: 20040924, end: 20040930
  34. ISOPROMETHAZINE HYDROCHLORIDE [Concomitant]
     Indication: SEDATION
     Route: 048
     Dates: start: 20040926, end: 20041003
  35. ACETAMINOPHEN [Concomitant]
     Indication: PYREXIA
     Route: 054
     Dates: start: 20041001, end: 20041001

REACTIONS (5)
  - CONJUNCTIVITIS [None]
  - DIALYSIS [None]
  - PULMONARY CONGESTION [None]
  - STAPHYLOCOCCAL SEPSIS [None]
  - STEVENS-JOHNSON SYNDROME [None]
